FAERS Safety Report 16962921 (Version 2)
Quarter: 2019Q4

REPORT INFORMATION
  Report Type: Spontaneous
  Country: FR (occurrence: FR)
  Receive Date: 20191025
  Receipt Date: 20191204
  Transmission Date: 20200122
  Serious: Yes (Other)
  Sender: FDA-Public Use
  Company Number: FR-JNJFOC-20191023158

PATIENT
  Age: 29 Year
  Sex: Female

DRUGS (2)
  1. EDURANT [Suspect]
     Active Substance: RILPIVIRINE HYDROCHLORIDE
     Indication: HIV INFECTION
     Dosage: ADMINISTERED AT THERAPEUTIC DOSE
     Route: 048
  2. ENTOCORT [Interacting]
     Active Substance: BUDESONIDE
     Indication: CROHN^S DISEASE
     Dosage: ADMINISTERED AT THERAPEUTIC DOSE
     Route: 065

REACTIONS (2)
  - Cushing^s syndrome [Unknown]
  - Drug interaction [Unknown]
